FAERS Safety Report 6754322-X (Version None)
Quarter: 2010Q2

REPORT INFORMATION
  Report Type: 
  Country: None (occurrence: None)
  Receive Date: 20100524
  Receipt Date: 20100322
  Transmission Date: 20101027
  Serious: No
  Sender: FDA-Public Use
  Company Number: 009257

PATIENT
  Sex: Female

DRUGS (2)
  1. CIMZIA [Suspect]
     Indication: CROHN'S DISEASE
     Dosage: SUBCUTANEOUS; 400 MG/1X MONTH SUBCUTANEOUS
     Route: 058
     Dates: start: 20081208, end: 20100305
  2. CIMZIA [Suspect]
     Indication: CROHN'S DISEASE
     Dosage: SUBCUTANEOUS; 400 MG/1X MONTH SUBCUTANEOUS
     Route: 058
     Dates: start: 20100317

REACTIONS (1)
  - CYSTITIS [None]
